FAERS Safety Report 7634541 (Version 5)
Quarter: 2013Q3

REPORT INFORMATION
  Report Type: Spontaneous
  Country: US (occurrence: US)
  Receive Date: 20101020
  Receipt Date: 20130815
  Transmission Date: 20140515
  Serious: Yes (Hospitalization)
  Sender: FDA-Public Use
  Company Number: US-BAYER-201037305NA

PATIENT
  Age: 45 Year
  Sex: Female
  Weight: 63 kg

DRUGS (24)
  1. YAZ [Suspect]
     Indication: PREMENSTRUAL SYNDROME
     Route: 048
  2. OCELLA [Suspect]
     Indication: PREMENSTRUAL SYNDROME
     Route: 048
  3. YASMIN [Suspect]
     Indication: PREMENSTRUAL SYNDROME
     Route: 048
  4. YASMIN [Suspect]
     Indication: CONTRACEPTION
  5. PREDNISONE [Concomitant]
     Dosage: 5 MG, UNK
     Route: 048
  6. ALLEGRA [Concomitant]
     Dosage: 180 MG, UNK
     Route: 048
  7. EFFEXOR XR [Concomitant]
     Dosage: 150 MG, UNK
     Route: 048
  8. EFFEXOR XR [Concomitant]
     Dosage: UNK
  9. MORPHINE SULFATE [Concomitant]
     Dosage: 15 MG, UNK
     Route: 048
  10. SIMVASTATIN [Concomitant]
     Dosage: 40 MG, UNK
     Route: 048
  11. LEVOTHYROXINE [Concomitant]
     Dosage: 0.05 MG, UNK
     Route: 048
  12. VENLAFAXINE [Concomitant]
     Dosage: 75 MG, UNK
     Route: 048
  13. NASAL PREPARATIONS [Concomitant]
     Indication: CHRONIC SINUSITIS
     Dosage: UNK
     Dates: start: 20090203
  14. COLCHICINE [Concomitant]
     Indication: CUTANEOUS VASCULITIS
     Dosage: 0.6 MG, BID
     Dates: start: 20090203
  15. OXYCODONE [Concomitant]
     Dosage: 15 MG, QID
     Route: 048
     Dates: start: 20090203
  16. MELATONIN [Concomitant]
     Indication: SLEEP DISORDER
     Dosage: UNK
     Dates: start: 20090203
  17. MULTIVITAMIN [Concomitant]
     Dosage: UNK
     Dates: start: 20090203
  18. VITAMIN B1 [Concomitant]
     Dosage: UNK
     Dates: start: 20090203
  19. FISH OIL [Concomitant]
     Dosage: UNK
     Dates: start: 20090203
  20. MS-CONTIN [Concomitant]
  21. HYDROCODONE [Concomitant]
  22. CALTRATE PLUS [Concomitant]
     Dosage: ONCE DAILY
     Route: 048
     Dates: start: 20090203
  23. BONIVA [Concomitant]
     Dosage: 150 MG, Q1MON
     Route: 048
     Dates: start: 20090203
  24. FLUTICASONE [Concomitant]
     Dosage: 2 SPRAYS PER DAY
     Route: 045
     Dates: start: 20080924, end: 20090802

REACTIONS (7)
  - Deep vein thrombosis [Recovered/Resolved]
  - Pulmonary embolism [Recovering/Resolving]
  - Depression [None]
  - Pain in extremity [Recovered/Resolved]
  - Dyspnoea [Recovering/Resolving]
  - Anxiety [None]
  - Stress [None]
